FAERS Safety Report 10096122 (Version 1)
Quarter: 2014Q2

REPORT INFORMATION
  Report Type: Spontaneous
  Country: US (occurrence: None)
  Receive Date: 20140410
  Receipt Date: 20140410
  Transmission Date: 20141212
  Serious: Yes (Other)
  Sender: FDA-Public Use
  Company Number: 2013-US-000821

PATIENT
  Age: 20 Year
  Sex: Male

DRUGS (1)
  1. CLOZAPINE USP, ODT (CLOZAPINE, USP)TABLET, MG [Suspect]
     Indication: PSYCHOTIC DISORDER
     Route: 048
     Dates: start: 20130812, end: 20130815

REACTIONS (1)
  - Agranulocytosis [None]
